FAERS Safety Report 8775371 (Version 2)
Quarter: 2012Q4

REPORT INFORMATION
  Report Type: 
  Country: US (occurrence: US)
  Receive Date: 20120910
  Receipt Date: 20121001
  Transmission Date: 20130627
  Serious: Yes (Other)
  Sender: FDA-Public Use
  Company Number: US-PFIZER INC-2012219421

PATIENT
  Age: 81 Year
  Sex: Female
  Weight: 53.52 kg

DRUGS (10)
  1. ALPRAZOLAM [Suspect]
     Indication: DEPRESSION
     Dosage: 0.25 mg, 1x/day
     Route: 048
     Dates: end: 201205
  2. ALPRAZOLAM [Suspect]
     Dosage: 0.25 mg, 3x/day
     Route: 048
     Dates: start: 201205
  3. MIRTAZAPINE [Suspect]
     Indication: DEPRESSION
     Dosage: 7.5 mg, 1x/day at night
     Route: 048
     Dates: start: 201205
  4. XANAX [Suspect]
     Dosage: 0.25, 3x/day
  5. REMERON [Suspect]
     Dosage: 7.5 at bedtime (HS)
  6. LOPRESSOR [Concomitant]
     Dosage: UNK
  7. EFFEXOR [Concomitant]
     Dosage: UNK
  8. PANTOPRAZOLE [Concomitant]
     Dosage: UNK
  9. Z-BEC [Concomitant]
     Dosage: UNK
  10. DIOVAN [Concomitant]
     Dosage: UNK

REACTIONS (4)
  - Urinary tract infection [Not Recovered/Not Resolved]
  - Depression [Not Recovered/Not Resolved]
  - Pollakiuria [Not Recovered/Not Resolved]
  - Incontinence [Not Recovered/Not Resolved]
